FAERS Safety Report 17143655 (Version 4)
Quarter: 2020Q2

REPORT INFORMATION
  Report Type: Report from Study
  Country: US (occurrence: US)
  Receive Date: 20191212
  Receipt Date: 20200604
  Transmission Date: 20200713
  Serious: Yes (Hospitalization)
  Sender: FDA-Public Use
  Company Number: US-UCBSA-2019052066

PATIENT
  Age: 69 Year
  Sex: Female
  Weight: 85 kg

DRUGS (6)
  1. LACOSAMIDE. [Suspect]
     Active Substance: LACOSAMIDE
     Indication: SEIZURE
     Dosage: 50 MILLIGRAM, 5X/DAY
     Route: 048
  2. PROBENECID/COLCHICINE [Suspect]
     Active Substance: COLCHICINE\PROBENECID
     Indication: PRODUCT USED FOR UNKNOWN INDICATION
     Dosage: UNK
  3. LACOSAMIDE. [Suspect]
     Active Substance: LACOSAMIDE
     Dosage: (50MG) 2 AT  LUNCH, 2 AT DINNER AND 1 AT BEDTIME, 3X/DAY (TID)
     Route: 048
     Dates: start: 20190823, end: 20200601
  4. PHENOBARBITAL. [Concomitant]
     Active Substance: PHENOBARBITAL
     Indication: SEIZURE
     Dosage: UNK
  5. VITAMIN B3 [Concomitant]
     Active Substance: NIACIN
     Indication: PRODUCT USED FOR UNKNOWN INDICATION
     Dosage: UNK
  6. LASIX [Suspect]
     Active Substance: FUROSEMIDE
     Indication: PRODUCT USED FOR UNKNOWN INDICATION
     Dosage: 80 MG

REACTIONS (10)
  - Product availability issue [Unknown]
  - Loss of consciousness [Recovered/Resolved]
  - Oedema peripheral [Recovered/Resolved]
  - Intentional product misuse [Unknown]
  - Head injury [Recovered/Resolved]
  - Seizure [Recovered/Resolved]
  - Therapy cessation [Unknown]
  - Fall [Recovered/Resolved]
  - Urinary tract infection [Unknown]
  - Dizziness [Unknown]

NARRATIVE: CASE EVENT DATE: 201908
